FAERS Safety Report 10014400 (Version 3)
Quarter: 2014Q4

REPORT INFORMATION
  Report Type: Spontaneous
  Country: IT (occurrence: IT)
  Receive Date: 20140317
  Receipt Date: 20141112
  Transmission Date: 20150528
  Serious: Yes (Other)
  Sender: FDA-Public Use
  Company Number: IT-ROCHE-1365740

PATIENT
  Age: 48 Year
  Weight: 77 kg

DRUGS (4)
  1. PEGASYS [Suspect]
     Active Substance: PEGINTERFERON ALFA-2A
     Indication: ANTIVIRAL TREATMENT
     Route: 058
     Dates: start: 20131009, end: 20140225
  2. COPEGUS [Interacting]
     Active Substance: RIBAVIRIN
     Indication: ANTIVIRAL TREATMENT
     Dosage: DOSE REDUSED ON 03/DEC/2013
     Route: 048
     Dates: start: 20131203
  3. COPEGUS [Interacting]
     Active Substance: RIBAVIRIN
     Route: 065
     Dates: start: 20131203
  4. INCIVO [Interacting]
     Active Substance: TELAPREVIR
     Indication: ANTIVIRAL TREATMENT
     Route: 048
     Dates: start: 20131113, end: 20140204

REACTIONS (2)
  - Drug interaction [Unknown]
  - Pancytopenia [Recovered/Resolved]

NARRATIVE: CASE EVENT DATE: 20131203
